FAERS Safety Report 11514306 (Version 1)
Quarter: 2015Q3

REPORT INFORMATION
  Report Type: Spontaneous
  Country: US (occurrence: US)
  Receive Date: 20150903
  Receipt Date: 20150903
  Transmission Date: 20151125
  Serious: No
  Sender: FDA-Public Use
  Company Number: US-ELI_LILLY_AND_COMPANY-US201210001023

PATIENT

DRUGS (2)
  1. CYMBALTA [Suspect]
     Active Substance: DULOXETINE HYDROCHLORIDE
     Dosage: 60MG, ONCE DAILY
  2. CYMBALTA [Suspect]
     Active Substance: DULOXETINE HYDROCHLORIDE
     Indication: DIABETIC NEUROPATHY
     Dosage: 30MG, ONCE DAILY
     Dates: start: 20110304

REACTIONS (5)
  - Hypoaesthesia [Unknown]
  - Drug ineffective [Recovered/Resolved]
  - Headache [Unknown]
  - Gastrointestinal disorder [Unknown]
  - Paraesthesia [Unknown]
